FAERS Safety Report 14914878 (Version 2)
Quarter: 2018Q3

REPORT INFORMATION
  Report Type: Spontaneous
  Country: US (occurrence: US)
  Receive Date: 20180518
  Receipt Date: 20180802
  Transmission Date: 20181010
  Serious: Yes (Hospitalization)
  Sender: FDA-Public Use
  Company Number: US-VERTEX PHARMACEUTICALS-2018-003273

PATIENT
  Age: 11 Year
  Sex: Female
  Weight: 30 kg

DRUGS (11)
  1. SODIUM CHLORIDE. [Concomitant]
     Active Substance: SODIUM CHLORIDE
     Dosage: 4 MILLILITER, BID. MAY INCREASE TO 4 TIMES A DAY WITH CF EXACERBATION
     Route: 055
     Dates: start: 20180517
  2. PROAIR HFA [Concomitant]
     Active Substance: ALBUTEROL SULFATE
     Dosage: INHALE 2 PUFFS BY MOUTH, BID
     Route: 055
     Dates: start: 20171017
  3. ALBUTEROL                          /00139501/ [Concomitant]
     Active Substance: ALBUTEROL
     Indication: COUGH
     Dosage: ONE VIAL (2.5 MG TOTAL) EVERY FOUR HOUR, PRN
     Route: 055
     Dates: start: 20170930, end: 20171030
  4. FLOVENT HFA [Concomitant]
     Active Substance: FLUTICASONE PROPIONATE
     Indication: COUGH
     Dosage: 2 PUFFS, BID. INCREASE TO 3 PUFFS DAILY FOR INCREASED COUGH
     Route: 055
     Dates: start: 20180508
  5. OMEPRAZOLE. [Concomitant]
     Active Substance: OMEPRAZOLE
     Dosage: 1 DOSAGE FORM, QD. TAKE 1/2 TO 1 HR BEFORE FOOD
     Route: 048
     Dates: start: 20171017
  6. CREON [Concomitant]
     Active Substance: PANCRELIPASE AMYLASE\PANCRELIPASE LIPASE\PANCRELIPASE PROTEASE
     Dosage: 6 CAPSULES WITH MEAL AND 3?4 CAPSULES WITH SNACKS
     Route: 048
     Dates: start: 20180430
  7. FLUTICASONE. [Concomitant]
     Active Substance: FLUTICASONE
     Dosage: ONE SPRAY IN BOTH NOSTRILS, QD
     Route: 045
     Dates: start: 20160921
  8. ENOXAPARIN [Concomitant]
     Active Substance: ENOXAPARIN
     Dosage: INJECT THIRTY ONE MG UNDER SKIN INTO FATTY TISSUE, BID
     Route: 058
     Dates: start: 20180516
  9. ORKAMBI [Suspect]
     Active Substance: IVACAFTOR\LUMACAFTOR
     Indication: CYSTIC FIBROSIS
     Dosage: 2 DOSAGE FORM (100/125 MG EACH), BID
     Route: 048
     Dates: start: 20161221
  10. PULMOZYME [Concomitant]
     Active Substance: DORNASE ALFA
     Dosage: INHALE 1 VIAL, DAILY
     Route: 055
     Dates: start: 20180530
  11. MEPHYTON [Concomitant]
     Active Substance: PHYTONADIONE
     Dosage: 0.5 DOSAGE FORM EVERY MON AND THURS
     Route: 048
     Dates: start: 20170413

REACTIONS (1)
  - Infective pulmonary exacerbation of cystic fibrosis [Recovered/Resolved]

NARRATIVE: CASE EVENT DATE: 20180509
